FAERS Safety Report 21753460 (Version 2)
Quarter: 2023Q2

REPORT INFORMATION
  Report Type: Spontaneous
  Country: US (occurrence: US)
  Receive Date: 20221220
  Receipt Date: 20230605
  Transmission Date: 20230721
  Serious: Yes (Other)
  Sender: FDA-Public Use
  Company Number: US-BRISTOL-MYERS SQUIBB COMPANY-2022-155887

PATIENT
  Age: 74 Year
  Sex: Female

DRUGS (2)
  1. REVLIMID [Suspect]
     Active Substance: LENALIDOMIDE
     Indication: Product used for unknown indication
     Route: 048
     Dates: start: 20221031
  2. REVLIMID [Suspect]
     Active Substance: LENALIDOMIDE
     Route: 048
     Dates: start: 20221101

REACTIONS (6)
  - Paraesthesia [Unknown]
  - Insomnia [Unknown]
  - Fatigue [Unknown]
  - Rash [Recovered/Resolved]
  - Neuropathy peripheral [Unknown]
  - Gastritis [Unknown]

NARRATIVE: CASE EVENT DATE: 20221128
